FAERS Safety Report 5398257-6 (Version None)
Quarter: 2007Q3

REPORT INFORMATION
  Report Type: 
  Country: None (occurrence: None)
  Receive Date: 20070726
  Receipt Date: 20070711
  Transmission Date: 20080115
  Serious: Yes (Hospitalization)
  Sender: FDA-Public Use
  Company Number: US-GENENTECH-245026

PATIENT

DRUGS (2)
  1. BEVACIZUMAB [Suspect]
     Indication: PANCREATIC CARCINOMA
     Dosage: UNK, 2/MONTH
     Dates: start: 20021108
  2. CAPECITABINE [Suspect]
     Indication: PANCREATIC CARCINOMA
     Dosage: 650 MG/M2, BID
     Route: 048
     Dates: start: 20021108

REACTIONS (3)
  - GASTRITIS [None]
  - GASTROINTESTINAL TOXICITY [None]
  - PANCYTOPENIA [None]
